FAERS Safety Report 7321569-3 (Version None)
Quarter: 2011Q1

REPORT INFORMATION
  Report Type: 
  Country: None (occurrence: None)
  Receive Date: 20110228
  Receipt Date: 20100521
  Transmission Date: 20110831
  Serious: No
  Sender: FDA-Public Use
  Company Number: A0860843A

PATIENT
  Age: 42 Year
  Sex: Male

DRUGS (2)
  1. VALTREX [Suspect]
     Indication: ARTHRITIS
     Dosage: 1000MG PER DAY
     Route: 048
     Dates: start: 20100423
  2. ACYCLOVIR [Suspect]
     Indication: ENCEPHALITIS
     Route: 042
     Dates: start: 20000501, end: 20000601

REACTIONS (2)
  - THERAPEUTIC RESPONSE UNEXPECTED [None]
  - OFF LABEL USE [None]
